FAERS Safety Report 20684019 (Version 2)
Quarter: 2022Q2

REPORT INFORMATION
  Report Type: Report from Study
  Country: MX (occurrence: MX)
  Receive Date: 20220407
  Receipt Date: 20220425
  Transmission Date: 20220721
  Serious: No
  Sender: FDA-Public Use
  Company Number: MX-NOVARTISPH-NVSC2022MX078946

PATIENT
  Sex: Female
  Weight: 50 kg

DRUGS (2)
  1. EXELON [Suspect]
     Active Substance: RIVASTIGMINE TARTRATE
     Indication: Amnesia
     Dosage: 1 DOSAGE FORM, QD (9 MG, START DATE- 8 YEARS AGO)
     Route: 062
     Dates: end: 2017
  2. EXELON [Suspect]
     Active Substance: RIVASTIGMINE TARTRATE
     Dosage: 1 DOSAGE FORM, QD (9 MG)
     Route: 062
     Dates: start: 2017

REACTIONS (7)
  - Memory impairment [Unknown]
  - Aggression [Unknown]
  - Malaise [Unknown]
  - Crying [Unknown]
  - Histrionic personality disorder [Recovered/Resolved]
  - Irritability [Recovered/Resolved]
  - Product use in unapproved indication [Unknown]

NARRATIVE: CASE EVENT DATE: 20170101
